FAERS Safety Report 16854853 (Version 1)
Quarter: 2019Q3

REPORT INFORMATION
  Report Type: Spontaneous
  Country: ID (occurrence: ID)
  Receive Date: 20190926
  Receipt Date: 20190926
  Transmission Date: 20191005
  Serious: Yes (Death)
  Sender: FDA-Public Use
  Company Number: ID-ROCHE-2406937

PATIENT
  Age: 57 Year
  Sex: Female

DRUGS (33)
  1. CARBOPLATIN. [Suspect]
     Active Substance: CARBOPLATIN
     Indication: PLEURAL EFFUSION
  2. GEMZAR [Suspect]
     Active Substance: GEMCITABINE HYDROCHLORIDE
     Indication: PLEURAL EFFUSION
  3. OLAPARIB. [Suspect]
     Active Substance: OLAPARIB
     Indication: OVARIAN CANCER STAGE IV
     Route: 065
  4. PACLITAXEL. [Suspect]
     Active Substance: PACLITAXEL
     Indication: OVARIAN CANCER STAGE IV
     Route: 065
  5. LETROZOLE. [Suspect]
     Active Substance: LETROZOLE
     Indication: PLEURAL EFFUSION
  6. NIRAPARIB [Suspect]
     Active Substance: NIRAPARIB
     Indication: OVARIAN CANCER STAGE IV
     Route: 065
  7. NIVOLUMAB [Suspect]
     Active Substance: NIVOLUMAB
     Indication: OVARIAN CANCER STAGE IV
     Route: 065
  8. AVASTIN [Suspect]
     Active Substance: BEVACIZUMAB
     Indication: OVARIAN CANCER STAGE IV
     Route: 065
  9. PACLITAXEL. [Suspect]
     Active Substance: PACLITAXEL
     Indication: PLEURAL EFFUSION
  10. KEYTRUDA [Suspect]
     Active Substance: PEMBROLIZUMAB
     Indication: PLEURAL EFFUSION
  11. CISPLATIN. [Suspect]
     Active Substance: CISPLATIN
     Indication: PLEURAL EFFUSION
  12. LETROZOLE. [Suspect]
     Active Substance: LETROZOLE
     Indication: OVARIAN CANCER STAGE IV
     Route: 065
  13. LIPOSOMAL DOXORUBICIN HYDROCHLORIDE [Suspect]
     Active Substance: DOXORUBICIN HYDROCHLORIDE
     Indication: ASCITES
  14. NIRAPARIB [Suspect]
     Active Substance: NIRAPARIB
     Indication: PLEURAL EFFUSION
  15. NIRAPARIB [Suspect]
     Active Substance: NIRAPARIB
     Indication: ASCITES
  16. NIVOLUMAB [Suspect]
     Active Substance: NIVOLUMAB
     Indication: PLEURAL EFFUSION
  17. NIVOLUMAB [Suspect]
     Active Substance: NIVOLUMAB
     Indication: ASCITES
  18. PACLITAXEL. [Suspect]
     Active Substance: PACLITAXEL
     Indication: ASCITES
  19. OLAPARIB. [Suspect]
     Active Substance: OLAPARIB
     Indication: PLEURAL EFFUSION
  20. CISPLATIN. [Suspect]
     Active Substance: CISPLATIN
     Indication: ASCITES
  21. GEMZAR [Suspect]
     Active Substance: GEMCITABINE HYDROCHLORIDE
     Indication: ASCITES
  22. LIPOSOMAL DOXORUBICIN HYDROCHLORIDE [Suspect]
     Active Substance: DOXORUBICIN HYDROCHLORIDE
     Indication: OVARIAN CANCER STAGE IV
     Route: 065
  23. KEYTRUDA [Suspect]
     Active Substance: PEMBROLIZUMAB
     Indication: ASCITES
  24. AVASTIN [Suspect]
     Active Substance: BEVACIZUMAB
     Indication: PLEURAL EFFUSION
  25. AVASTIN [Suspect]
     Active Substance: BEVACIZUMAB
     Indication: ASCITES
  26. CARBOPLATIN. [Suspect]
     Active Substance: CARBOPLATIN
     Indication: ASCITES
  27. OLAPARIB. [Suspect]
     Active Substance: OLAPARIB
     Indication: ASCITES
  28. LIPOSOMAL DOXORUBICIN HYDROCHLORIDE [Suspect]
     Active Substance: DOXORUBICIN HYDROCHLORIDE
     Indication: PLEURAL EFFUSION
  29. KEYTRUDA [Suspect]
     Active Substance: PEMBROLIZUMAB
     Indication: OVARIAN CANCER STAGE IV
     Route: 065
  30. CISPLATIN. [Suspect]
     Active Substance: CISPLATIN
     Indication: OVARIAN CANCER STAGE IV
     Route: 065
  31. CARBOPLATIN. [Suspect]
     Active Substance: CARBOPLATIN
     Indication: OVARIAN CANCER STAGE IV
     Route: 065
  32. GEMZAR [Suspect]
     Active Substance: GEMCITABINE HYDROCHLORIDE
     Indication: OVARIAN CANCER STAGE IV
     Route: 065
  33. LETROZOLE. [Suspect]
     Active Substance: LETROZOLE
     Indication: ASCITES

REACTIONS (1)
  - Performance status decreased [Fatal]
